FAERS Safety Report 9244695 (Version 1)
Quarter: 2013Q2

REPORT INFORMATION
  Report Type: Spontaneous
  Country: US (occurrence: US)
  Receive Date: 20130422
  Receipt Date: 20130422
  Transmission Date: 20140414
  Serious: Yes (Other)
  Sender: FDA-Public Use
  Company Number: US-TEVA-399290USA

PATIENT
  Sex: Female

DRUGS (1)
  1. PLAN B ONE-STEP [Suspect]
     Indication: ABORTION INDUCED
     Dosage: 1.5 MILLIGRAM DAILY;
     Route: 048
     Dates: start: 20130416, end: 20130416

REACTIONS (3)
  - Pregnancy on oral contraceptive [Unknown]
  - Off label use [Unknown]
  - Pregnancy [Unknown]
